FAERS Safety Report 7198756-0 (Version None)
Quarter: 2010Q4

REPORT INFORMATION
  Report Type: 
  Country: None (occurrence: None)
  Receive Date: 20101227
  Receipt Date: 20100315
  Transmission Date: 20110411
  Serious: No
  Sender: FDA-Public Use
  Company Number: US-ABBOTT-10P-163-0633068-00

PATIENT
  Age: 62 Year
  Sex: Male

DRUGS (3)
  1. LUPRON DEPOT [Suspect]
     Indication: PROSTATE CANCER
     Dates: start: 20100310
  2. MORPHINE [Concomitant]
     Indication: BONE PAIN
     Dosage: UNKNOWN
     Route: 062
     Dates: start: 20100310, end: 20100313
  3. UNKNOWN INHALER [Concomitant]
     Indication: OBSTRUCTIVE AIRWAYS DISORDER
     Dosage: UNKNOWN

REACTIONS (4)
  - BONE PAIN [None]
  - HYPOAESTHESIA [None]
  - NAUSEA [None]
  - VOMITING PROJECTILE [None]
